FAERS Safety Report 7021327-3 (Version None)
Quarter: 2010Q3

REPORT INFORMATION
  Report Type: 
  Country: None (occurrence: None)
  Receive Date: 20100929
  Receipt Date: 20100920
  Transmission Date: 20110219
  Serious: Yes (Other)
  Sender: FDA-Public Use
  Company Number: US-PFIZER INC-2010120177

PATIENT
  Sex: Female
  Weight: 80 kg

DRUGS (9)
  1. CHANTIX [Suspect]
     Indication: SMOKING CESSATION THERAPY
     Dosage: 0.5 MG, UNK
     Route: 048
     Dates: start: 20100701, end: 20100101
  2. CHANTIX [Suspect]
     Dosage: 1 MG, 2X/DAY
     Route: 048
     Dates: start: 20100101, end: 20100915
  3. PROTONIX [Suspect]
     Indication: GASTROOESOPHAGEAL REFLUX DISEASE
     Dosage: 40 MG, 2X/DAY
     Route: 048
  4. IMODIUM A-D [Suspect]
     Indication: IRRITABLE BOWEL SYNDROME
     Dosage: 6 MG, 1X/DAY
     Route: 048
  5. MULTI-VITAMINS [Concomitant]
     Indication: SUPPLEMENTATION THERAPY
     Dosage: UNK
  6. SEROQUEL [Concomitant]
     Indication: BIPOLAR DISORDER
     Dosage: 100 MG, 2X/DAY
  7. NEURONTIN [Concomitant]
     Indication: NEURALGIA
     Dosage: 300 MG, 2X/DAY
  8. TYLENOL [Concomitant]
     Indication: PAIN
     Dosage: 650 MG, 2X/DAY
  9. OXYCODONE [Concomitant]
     Indication: PAIN
     Dosage: 10 MG, 2X/DAY

REACTIONS (5)
  - ABDOMINAL PAIN UPPER [None]
  - DRUG INEFFECTIVE [None]
  - GASTRIC ULCER [None]
  - GASTROOESOPHAGEAL REFLUX DISEASE [None]
  - IRRITABLE BOWEL SYNDROME [None]
